FAERS Safety Report 7019993-1 (Version None)
Quarter: 2010Q3

REPORT INFORMATION
  Report Type: 
  Country: None (occurrence: None)
  Receive Date: 20100929
  Receipt Date: 20100917
  Transmission Date: 20110219
  Serious: Yes (Hospitalization)
  Sender: FDA-Public Use
  Company Number: CA-JNJFOC-20100906660

PATIENT
  Sex: Male

DRUGS (5)
  1. REMICADE [Suspect]
     Indication: COLITIS ULCERATIVE
     Route: 042
  2. IMURAN [Concomitant]
  3. MERCAPTOPURINE [Concomitant]
  4. ALLOPURINOL [Concomitant]
  5. PLAVIX [Concomitant]

REACTIONS (1)
  - COLECTOMY [None]
